FAERS Safety Report 12073826 (Version 1)
Quarter: 2016Q1

REPORT INFORMATION
  Report Type: Spontaneous
  Country: US (occurrence: US)
  Receive Date: 20160212
  Receipt Date: 20160212
  Transmission Date: 20160526
  Serious: No
  Sender: FDA-Public Use
  Company Number: US-HORIZON-PEN-0039-2016

PATIENT
  Age: 72 Year
  Sex: Female

DRUGS (12)
  1. AMLODIPINE [Concomitant]
     Active Substance: AMLODIPINE BESYLATE
  2. MULTIVITAMINS [Concomitant]
     Active Substance: VITAMINS
  3. REMICADE [Concomitant]
     Active Substance: INFLIXIMAB
     Route: 042
  4. PERCOCET [Concomitant]
     Active Substance: ACETAMINOPHEN\OXYCODONE HYDROCHLORIDE
  5. BONIVA [Concomitant]
     Active Substance: IBANDRONATE SODIUM
  6. PREDNISONE. [Concomitant]
     Active Substance: PREDNISONE
  7. AZATHIOPRINE. [Concomitant]
     Active Substance: AZATHIOPRINE
  8. OXYCODONE [Concomitant]
     Active Substance: OXYCODONE
  9. PRILOSEC [Concomitant]
     Active Substance: OMEPRAZOLE MAGNESIUM
  10. LOSARTAN. [Concomitant]
     Active Substance: LOSARTAN
  11. PENNSAID [Suspect]
     Active Substance: DICLOFENAC SODIUM
     Indication: RHEUMATOID ARTHRITIS
     Dosage: 1 PUMP AS NEEDED
  12. IRON [Concomitant]
     Active Substance: IRON

REACTIONS (1)
  - Off label use [Unknown]
